FAERS Safety Report 8834857 (Version 1)
Quarter: 2012Q4

REPORT INFORMATION
  Report Type: 
  Country: FR (occurrence: FR)
  Receive Date: 20121011
  Receipt Date: 20121011
  Transmission Date: 20130627
  Serious: Yes (Death, Life-Threatening)
  Sender: FDA-Public Use
  Company Number: FR-BRISTOL-MYERS SQUIBB COMPANY-17013335

PATIENT
  Age: 50 Year
  Sex: Male

DRUGS (11)
  1. ABILIFY TABS [Suspect]
     Route: 048
  2. LARGACTIL [Suspect]
     Route: 048
  3. TERCIAN [Suspect]
     Route: 048
  4. THERALENE [Suspect]
     Dosage: Oral solution, 20 drops/day orally.
4%
     Route: 048
  5. PREZISTA [Concomitant]
     Route: 048
  6. PAROXETINE [Concomitant]
  7. SERESTA [Concomitant]
     Dosage: tablet
     Route: 048
  8. CELSENTRI [Concomitant]
     Dosage: Tab
     Route: 048
  9. EPIVIR [Concomitant]
     Route: 048
  10. INTELENCE [Concomitant]
     Dosage: 1 dosage form: 100 mg tablet
     Route: 048
  11. NORVIR [Concomitant]
     Route: 048

REACTIONS (7)
  - Faecaloma [Fatal]
  - Subileus [Fatal]
  - Shock [Fatal]
  - Electrocardiogram QT prolonged [Unknown]
  - Cardiac arrest [Unknown]
  - Hypothyroidism [Unknown]
  - Liver function test abnormal [Unknown]
